FAERS Safety Report 7036045-5 (Version None)
Quarter: 2010Q4

REPORT INFORMATION
  Report Type: 
  Country: None (occurrence: None)
  Receive Date: 20101008
  Receipt Date: 20101001
  Transmission Date: 20110411
  Serious: Yes (Other)
  Sender: FDA-Public Use
  Company Number: US-PURDUE-USA-2010-0048296

PATIENT
  Sex: Female

DRUGS (2)
  1. OXYCONTIN [Suspect]
     Indication: NEUROPATHY PERIPHERAL
     Dosage: 40 MG, TID
     Dates: start: 20100901
  2. OXYCONTIN [Suspect]
     Indication: ARTHRITIS

REACTIONS (7)
  - ABDOMINAL DISCOMFORT [None]
  - CARDIOMYOPATHY [None]
  - FLATULENCE [None]
  - HYPOAESTHESIA [None]
  - INADEQUATE ANALGESIA [None]
  - NAUSEA [None]
  - SOMNOLENCE [None]
